FAERS Safety Report 4397376-0 (Version None)
Quarter: 2004Q2

REPORT INFORMATION
  Report Type: 
  Country: None (occurrence: None)
  Receive Date: 20040621
  Receipt Date: 20031209
  Transmission Date: 20050107
  Serious: Yes (Death)
  Sender: FDA-Public Use
  Company Number: USA-2003-0011812

PATIENT
  Age: 17 Year
  Sex: Male
  Weight: 92.5 kg

DRUGS (4)
  1. OXYCODONE HCL [Suspect]
  2. ALPRAZOLAM [Suspect]
  3. ETHANOL (ETHANOL) [Suspect]
  4. CANNABIS (CANNABIS) [Suspect]

REACTIONS (1)
  - MULTIPLE DRUG OVERDOSE ACCIDENTAL [None]
